FAERS Safety Report 4760119-2 (Version None)
Quarter: 2005Q3

REPORT INFORMATION
  Report Type: 
  Country: None (occurrence: None)
  Receive Date: 20050902
  Receipt Date: 20050613
  Transmission Date: 20060218
  Serious: No
  Sender: FDA-Public Use
  Company Number: US-GLAXOSMITHKLINE-A0562388A

PATIENT
  Sex: Female

DRUGS (5)
  1. REQUIP [Suspect]
     Indication: RESTLESS LEGS SYNDROME
     Dosage: 2MG PER DAY
     Route: 048
  2. MIRALAX [Concomitant]
  3. ATIVAN [Concomitant]
  4. SYNTHROID [Concomitant]
  5. LISINOPRIL [Concomitant]

REACTIONS (1)
  - DRUG INEFFECTIVE [None]
